FAERS Safety Report 7437213-0 (Version None)
Quarter: 2011Q2

REPORT INFORMATION
  Report Type: 
  Country: None (occurrence: None)
  Receive Date: 20110426
  Receipt Date: 20110421
  Transmission Date: 20111010
  Serious: Yes (Hospitalization)
  Sender: FDA-Public Use
  Company Number: CA-PURDUE-USA-2010-0060902

PATIENT
  Sex: Male
  Weight: 92.7 kg

DRUGS (1)
  1. OXY INHALATION POWDER [Suspect]
     Indication: DRUG LEVEL
     Dosage: 40 MG, UNK
     Route: 045
     Dates: start: 20101126

REACTIONS (1)
  - PULMONARY EMBOLISM [None]
